FAERS Safety Report 6860634-1 (Version None)
Quarter: 2010Q3

REPORT INFORMATION
  Report Type: 
  Country: None (occurrence: None)
  Receive Date: 20100715
  Receipt Date: 20100701
  Transmission Date: 20110219
  Serious: Yes (Death, Hospitalization, Other)
  Sender: FDA-Public Use
  Company Number: US-1182346

PATIENT
  Age: 84 Year
  Sex: Female
  Weight: 54.4316 kg

DRUGS (5)
  1. BSS [Suspect]
     Indication: CATARACT OPERATION
     Dosage: (500 ML 1X OD INTRAOCULAR)
     Route: 031
     Dates: start: 20100405, end: 20100405
  2. NEVANAC [Suspect]
     Indication: CATARACT OPERATION
     Dosage: (OPHTHALMIC)
     Route: 047
     Dates: start: 20100405
  3. VIGAMOX [Suspect]
     Indication: CATARACT OPERATION
     Dosage: (OPHTHALMIC)
     Route: 047
     Dates: start: 20100405
  4. OMNIPRED [Suspect]
     Indication: CATARACT OPERATION
     Dosage: (OPHTHALMIC)
     Route: 047
     Dates: start: 20100405
  5. SYSTANE OPHTHALMIC SOLUTION [Suspect]
     Indication: CATARACT OPERATION
     Dosage: (OPHTHALMIC)
     Route: 047
     Dates: start: 20100405

REACTIONS (3)
  - EYE INFECTION STAPHYLOCOCCAL [None]
  - SCLERITIS [None]
  - VISUAL ACUITY REDUCED [None]
